FAERS Safety Report 9130171 (Version 2)
Quarter: 2014Q3

REPORT INFORMATION
  Report Type: Report from Study
  Country: US (occurrence: US)
  Receive Date: 20130228
  Receipt Date: 20140709
  Transmission Date: 20150326
  Serious: Yes (Hospitalization)
  Sender: FDA-Public Use
  Company Number: US-US-EMD SERONO, INC.-7195284

PATIENT
  Age: 59 Year
  Sex: Female

DRUGS (5)
  1. REBIF [Suspect]
     Active Substance: INTERFERON BETA-1A
     Indication: MULTIPLE SCLEROSIS
     Route: 058
     Dates: start: 20120228, end: 201212
  2. REBIF [Suspect]
     Active Substance: INTERFERON BETA-1A
     Dates: start: 20130530, end: 201406
  3. LIPITOR [Concomitant]
     Active Substance: ATORVASTATIN CALCIUM
     Indication: HYPERLIPIDAEMIA
  4. REBIF [Suspect]
     Active Substance: INTERFERON BETA-1A
     Dates: start: 201301
  5. ACETAMINOPHEN. [Concomitant]
     Active Substance: ACETAMINOPHEN
     Indication: PRODUCT USED FOR UNKNOWN INDICATION

REACTIONS (5)
  - Balance disorder [Recovering/Resolving]
  - Multiple sclerosis [Unknown]
  - Fall [Recovering/Resolving]
  - Chronic obstructive pulmonary disease [Recovering/Resolving]
  - Pneumonia [Recovered/Resolved]

NARRATIVE: CASE EVENT DATE: 20130129
